FAERS Safety Report 8508627-2 (Version None)
Quarter: 2012Q3

REPORT INFORMATION
  Report Type: 
  Country: None (occurrence: None)
  Receive Date: 20120713
  Receipt Date: 20120710
  Transmission Date: 20120928
  Serious: Yes (Hospitalization)
  Sender: FDA-Public Use
  Company Number: FR-SANOFI-AVENTIS-2012SA025123

PATIENT
  Age: 74 Year
  Sex: Female

DRUGS (4)
  1. FUCIDINE CAP [Concomitant]
     Dates: start: 20120201, end: 20120207
  2. ACETAMINOPHEN [Concomitant]
     Indication: PAIN
  3. RIFADIN [Suspect]
     Route: 042
     Dates: start: 20120102, end: 20120201
  4. TARGOCID [Suspect]
     Indication: OSTEITIS
     Route: 058
     Dates: start: 20120102, end: 20120207

REACTIONS (5)
  - TOXIC SKIN ERUPTION [None]
  - PRURITUS [None]
  - EOSINOPHILIA [None]
  - DRUG RASH WITH EOSINOPHILIA AND SYSTEMIC SYMPTOMS [None]
  - ERYTHEMA [None]
